FAERS Safety Report 25112546 (Version 3)
Quarter: 2025Q4

REPORT INFORMATION
  Report Type: Spontaneous
  Country: US (occurrence: None)
  Receive Date: 20250324
  Receipt Date: 20251031
  Transmission Date: 20260118
  Serious: No
  Sender: UCB
  Company Number: US-UCBSA-2024061963

PATIENT

DRUGS (4)
  1. BIMZELX [Suspect]
     Active Substance: BIMEKIZUMAB-BKZX
     Indication: Product used for unknown indication
     Dosage: UNK
  2. OPDIVO [Concomitant]
     Active Substance: NIVOLUMAB
     Indication: Product used for unknown indication
     Dosage: 4 DOSAGE FORM
  3. OTEZLA [Concomitant]
     Active Substance: APREMILAST
     Indication: Chronic kidney disease
     Dosage: UNK ( 1 PD)
  4. OTEZLA [Concomitant]
     Active Substance: APREMILAST
     Indication: Anaemia of chronic disease

REACTIONS (1)
  - Therapeutic response unexpected [Unknown]
